FAERS Safety Report 10587764 (Version 3)
Quarter: 2014Q4

REPORT INFORMATION
  Report Type: Spontaneous
  Country: US (occurrence: US)
  Receive Date: 20141117
  Receipt Date: 20141222
  Transmission Date: 20150529
  Serious: No
  Sender: FDA-Public Use
  Company Number: US-PFIZER INC-2014310034

PATIENT
  Age: 66 Year
  Sex: Female
  Weight: 50 kg

DRUGS (5)
  1. TYGACIL [Suspect]
     Active Substance: TIGECYCLINE
     Indication: MYCOBACTERIUM ABSCESSUS INFECTION
     Dosage: 50 MG, 1X/DAY
     Dates: start: 20140918, end: 20140918
  2. AZITHRO [Concomitant]
     Dosage: 500 MG, 1X/DAY
     Route: 048
     Dates: start: 201310
  3. TYGACIL [Suspect]
     Active Substance: TIGECYCLINE
     Indication: ATYPICAL MYCOBACTERIAL PNEUMONIA
     Dosage: 50 UNK, (PROLONG CAUSE PLANNED)
     Route: 042
     Dates: start: 20140919, end: 20141020
  4. IMIPENEM [Concomitant]
     Active Substance: IMIPENEM
     Dosage: 500 MG, 2X/DAY
     Dates: start: 201310
  5. CIPRO [Concomitant]
     Active Substance: CIPROFLOXACIN HYDROCHLORIDE
     Dosage: 500 MG, 2X/DAY
     Route: 048
     Dates: start: 201403

REACTIONS (6)
  - Weight decreased [Unknown]
  - Blood albumin decreased [Recovered/Resolved]
  - Weight increased [Unknown]
  - Oedema [Recovered/Resolved]
  - Oedema peripheral [Recovered/Resolved]
  - Off label use [Recovered/Resolved]

NARRATIVE: CASE EVENT DATE: 20140918
